FAERS Safety Report 4845436-X (Version None)
Quarter: 2005Q4

REPORT INFORMATION
  Report Type: 
  Country: None (occurrence: None)
  Receive Date: 20051129
  Receipt Date: 20051110
  Transmission Date: 20060501
  Serious: Yes (Hospitalization)
  Sender: FDA-Public Use
  Company Number: 6018494

PATIENT
  Age: 76 Year
  Sex: Female

DRUGS (9)
  1. LEVOTHYROXINE SODIUM [Suspect]
     Indication: HYPOTHYROIDISM
     Dosage: 125 MCG (125 MCG, 1 D)
     Route: 048
  2. TANAKAN (GINKGO BILOBA EXTRACT) [Suspect]
     Dosage: 3 DOSAGE FORMS (3 DOSAGE FORMS, 1 D)
     Route: 048
     Dates: end: 20041030
  3. PROZAC [Suspect]
     Indication: DEPRESSION
     Route: 048
     Dates: end: 20051104
  4. PRITOR (TABLET) (TELMISARTAN) [Suspect]
     Indication: ESSENTIAL HYPERTENSION
     Dosage: 1 DOSAGE FORMS (1 DOSAGE FORMS, 1 IN 1 D)
     Route: 048
  5. DIAFUSOR (TRANSDERMAL PATCH) (GLYCERYL TRINITRATE) [Suspect]
     Indication: MYOCARDIAL ISCHAEMIA
     Dosage: 10 MG (10 MG, 1 IN 24 HR)
     Route: 062
  6. GARDENAL (TABLET) (PHENOBARBITAL) [Suspect]
     Dosage: 100 MG (100 MG, 1 IN 1 D)
     Route: 048
  7. KARDEGIC (POWDER FOR ORAL SOLUTION) (ACETYLSALICYLIC LYSINE) [Suspect]
     Route: 048
  8. OXEOL (TABLET) (BAMBUTEROL HYDROCHLORIDE) [Suspect]
     Route: 048
  9. SYMBICORT (POWDER FOR ORAL SOLUTION) (FORMOTEROL FUMARATE, BUDESONIDE) [Suspect]
     Route: 055

REACTIONS (4)
  - CUTANEOUS VASCULITIS [None]
  - HAEMATURIA [None]
  - LEUKOCYTOCLASTIC VASCULITIS [None]
  - RENAL IMPAIRMENT [None]
